FAERS Safety Report 5529166-7 (Version None)
Quarter: 2007Q4

REPORT INFORMATION
  Report Type: 
  Country: None (occurrence: None)
  Receive Date: 20071129
  Receipt Date: 20070316
  Transmission Date: 20080405
  Serious: No
  Sender: FDA-Public Use
  Company Number: A0643786A

PATIENT
  Sex: Female

DRUGS (2)
  1. WELLBUTRIN SR [Suspect]
     Route: 048
  2. WELLBUTRIN XL [Concomitant]
     Route: 048

REACTIONS (2)
  - ADVERSE EVENT [None]
  - DRUG INEFFECTIVE [None]
